FAERS Safety Report 5375451-1 (Version None)
Quarter: 2007Q2

REPORT INFORMATION
  Report Type: 
  Country: None (occurrence: None)
  Receive Date: 20070629
  Receipt Date: 20070626
  Transmission Date: 20071010
  Serious: Yes (Hospitalization, Other)
  Sender: FDA-Public Use
  Company Number: US-BOEHRINGER INGELHEIM PHARMACEUTICALS, INC.-2007-BP-07735BP

PATIENT
  Sex: Male
  Weight: 71 kg

DRUGS (2)
  1. TIPRANAVIR / RITONAVIR CAPSULES [Suspect]
     Indication: DRUG LEVEL
     Dosage: TPV/R 1000/400MG
     Route: 048
     Dates: start: 20070527, end: 20070604
  2. ROSUVASTATIN [Suspect]
     Indication: DRUG LEVEL
     Route: 048
     Dates: start: 20070525, end: 20070525

REACTIONS (2)
  - ASTHMA [None]
  - HYPERSENSITIVITY [None]
